FAERS Safety Report 5582930-0 (Version None)
Quarter: 2008Q1

REPORT INFORMATION
  Report Type: 
  Country: None (occurrence: None)
  Receive Date: 20080107
  Receipt Date: 20071228
  Transmission Date: 20080703
  Serious: Yes (Death, Hospitalization)
  Sender: FDA-Public Use
  Company Number: ES-ROCHE-537764

PATIENT
  Age: 71 Year
  Sex: Male
  Weight: 51 kg

DRUGS (8)
  1. CAPECITABINE [Suspect]
     Dosage: DOSE REPORTED AS 3000MG/ 24H DURING 14 DAYS.
     Route: 048
     Dates: start: 20070511, end: 20071223
  2. BEVACIZUMAB [Suspect]
     Dosage: DOSAGE FORM REPORTED AS INFUSION.
     Route: 042
     Dates: start: 20070511, end: 20071223
  3. LOPERAMIDE HCL [Concomitant]
     Dates: start: 20070511
  4. GLUTAMINE [Concomitant]
     Dosage: DRUG REPORTED AS GLUTAMINA.
     Dates: start: 20070511
  5. METOCLOPRAMIDA [Concomitant]
     Dates: start: 20070511
  6. PANTOPRAZOLE SODIUM [Concomitant]
     Dates: start: 20071204
  7. RANIDINE [Concomitant]
     Dosage: DRUG NAME REPORTED AS RANITIDINA.
     Dates: start: 20071204
  8. METAMIZOL [Concomitant]
     Dates: start: 20071204

REACTIONS (2)
  - DEATH [None]
  - PAIN [None]
